FAERS Safety Report 4436732-9 (Version None)
Quarter: 2004Q3

REPORT INFORMATION
  Report Type: 
  Country: None (occurrence: None)
  Receive Date: 20040726
  Receipt Date: 20040326
  Transmission Date: 20050211
  Serious: No
  Sender: FDA-Public Use
  Company Number: USA040361045

PATIENT
  Age: 56 Year
  Sex: Female

DRUGS (3)
  1. FORTEO [Suspect]
     Indication: OSTEOPOROSIS
     Dosage: 20 UG DAY
     Dates: start: 20040303, end: 20040303
  2. FOSAMAX [Concomitant]
  3. CALCIUM [Concomitant]

REACTIONS (1)
  - VAGINAL HAEMORRHAGE [None]
